FAERS Safety Report 10461841 (Version 1)
Quarter: 2014Q3

REPORT INFORMATION
  Report Type: Spontaneous
  Country: US (occurrence: None)
  Receive Date: 20140916
  Receipt Date: 20140916
  Transmission Date: 20150326
  Serious: Yes (Hospitalization)
  Sender: FDA-Public Use
  Company Number: US-H14001-14-00590

PATIENT
  Age: 65 Year
  Sex: Male

DRUGS (1)
  1. INFUMORPH [Suspect]
     Active Substance: MORPHINE SULFATE
     Indication: PAIN
     Dosage: CONTINUOUS INFUSION
     Dates: end: 201405

REACTIONS (11)
  - Incision site vesicles [None]
  - Implant site swelling [None]
  - Implant site erythema [None]
  - Implant site induration [None]
  - Erythema [None]
  - Cerebrospinal fluid leakage [None]
  - Wound infection [None]
  - Headache [None]
  - Photophobia [None]
  - Excoriation [None]
  - Wound secretion [None]

NARRATIVE: CASE EVENT DATE: 201405
